FAERS Safety Report 11390750 (Version 1)
Quarter: 2015Q3

REPORT INFORMATION
  Report Type: Spontaneous
  Country: US (occurrence: US)
  Receive Date: 20150818
  Receipt Date: 20150818
  Transmission Date: 20151125
  Serious: No
  Sender: FDA-Public Use
  Company Number: US-ROCHE-1384744

PATIENT
  Sex: Male
  Weight: 107 kg

DRUGS (1)
  1. PEGASYS [Suspect]
     Active Substance: PEGINTERFERON ALFA-2A
     Indication: HEPATITIS C
     Dosage: EXPIRY DATE OF PRODUCT WAS REPORTED AS DEC/2015.
     Route: 058
     Dates: start: 20140326

REACTIONS (2)
  - Malaise [Unknown]
  - Exposure via direct contact [Unknown]
